FAERS Safety Report 7987848-1 (Version None)
Quarter: 2011Q4

REPORT INFORMATION
  Report Type: 
  Country: None (occurrence: None)
  Receive Date: 20111216
  Receipt Date: 20110510
  Transmission Date: 20120403
  Serious: No
  Sender: FDA-Public Use
  Company Number: US-BRISTOL-MYERS SQUIBB COMPANY-15732001

PATIENT
  Age: 30 Year
  Sex: Female

DRUGS (5)
  1. ADDERALL 5 [Concomitant]
  2. WELLBUTRIN [Concomitant]
  3. SYNTHROID [Concomitant]
  4. ZOLOFT [Concomitant]
  5. ABILIFY [Suspect]

REACTIONS (1)
  - PRURITUS [None]
